FAERS Safety Report 11949126 (Version 1)
Quarter: 2016Q1

REPORT INFORMATION
  Report Type: Spontaneous
  Country: PL (occurrence: PL)
  Receive Date: 20160125
  Receipt Date: 20160125
  Transmission Date: 20160526
  Serious: Yes (Other)
  Sender: FDA-Public Use
  Company Number: PL-MYLANLABS-2016M1003109

PATIENT

DRUGS (3)
  1. VERAPAMIL [Interacting]
     Active Substance: VERAPAMIL HYDROCHLORIDE
     Indication: HYPERTENSION
     Dosage: 240 MG DAILY
     Route: 065
  2. LITHIUM. [Suspect]
     Active Substance: LITHIUM
     Indication: BIPOLAR DISORDER
     Dosage: STARTED 24 YEARS AGO; 900 MG DAILY
     Route: 065
  3. ENALAPRIL [Interacting]
     Active Substance: ENALAPRIL
     Indication: HYPERTENSION
     Dosage: 20 MG DAILY
     Route: 065

REACTIONS (4)
  - Drug interaction [Recovered/Resolved]
  - Hypothyroidism [Not Recovered/Not Resolved]
  - Nephrogenic diabetes insipidus [Recovered/Resolved]
  - Hyperparathyroidism primary [Recovered/Resolved]
